FAERS Safety Report 7877758-2 (Version None)
Quarter: 2011Q4

REPORT INFORMATION
  Report Type: 
  Country: None (occurrence: None)
  Receive Date: 20111031
  Receipt Date: 20111031
  Transmission Date: 20120403
  Serious: Yes (Hospitalization)
  Sender: FDA-Public Use
  Company Number: None

PATIENT
  Age: 5 Year
  Sex: Female

DRUGS (3)
  1. DAPSONE [Suspect]
     Indication: PNEUMOCYSTIS JIROVECI PNEUMONIA
     Dosage: 37.5MG
     Route: 048
     Dates: start: 20110615, end: 20110919
  2. DAPSONE [Suspect]
     Indication: LEUKAEMIA
     Dosage: 37.5MG
     Route: 048
     Dates: start: 20110615, end: 20110919
  3. DAPSONE [Suspect]
     Indication: PROPHYLAXIS
     Dosage: 37.5MG
     Route: 048
     Dates: start: 20110615, end: 20110919

REACTIONS (1)
  - METHAEMOGLOBINAEMIA [None]
